FAERS Safety Report 5970422-6 (Version None)
Quarter: 2008Q4

REPORT INFORMATION
  Report Type: 
  Country: None (occurrence: None)
  Receive Date: 20081126
  Receipt Date: 20081114
  Transmission Date: 20090506
  Serious: Yes (Other)
  Sender: FDA-Public Use
  Company Number: US-PFIZER INC-2008099020

PATIENT
  Age: 3 Year
  Sex: Female
  Weight: 21.338 kg

DRUGS (3)
  1. CORTISONE ACETATE [Suspect]
     Indication: URTICARIA
     Dosage: TEXT:UNSPECIFIED INJECTION
     Route: 050
     Dates: start: 20081108
  2. ZYRTEC [Suspect]
     Indication: URTICARIA
     Dosage: TEXT:1 TEASPOON ONCE
     Dates: start: 20081108, end: 20081108
  3. PREDNISONE TAB [Suspect]
     Indication: URTICARIA
     Dosage: TEXT:UNSPECIFIED INJECTION
     Route: 050
     Dates: start: 20081108

REACTIONS (4)
  - ANAPHYLACTIC SHOCK [None]
  - ERYTHEMA [None]
  - EYE SWELLING [None]
  - WRONG DRUG ADMINISTERED [None]
